FAERS Safety Report 16019108 (Version 2)
Quarter: 2019Q2

REPORT INFORMATION
  Report Type: Spontaneous
  Country: DE (occurrence: DE)
  Receive Date: 20190228
  Receipt Date: 20190404
  Transmission Date: 20190711
  Serious: Yes (Death, Other)
  Sender: FDA-Public Use
  Company Number: DE-TEVA-2019-DE-1016438

PATIENT
  Age: 79 Year
  Sex: Female
  Weight: 85 kg

DRUGS (2)
  1. LEVOFLOXACIN. [Suspect]
     Active Substance: LEVOFLOXACIN
     Indication: URINARY TRACT INFECTION
     Dates: start: 20181121, end: 20181126
  2. LEVOFLOXACIN. [Suspect]
     Active Substance: LEVOFLOXACIN
     Route: 042
     Dates: start: 20181121, end: 20181126

REACTIONS (4)
  - Tachypnoea [Fatal]
  - Circulatory collapse [Unknown]
  - Nausea [Unknown]
  - Tachycardia [Fatal]

NARRATIVE: CASE EVENT DATE: 20181125
